FAERS Safety Report 8820446 (Version 3)
Quarter: 2013Q2

REPORT INFORMATION
  Report Type: Report from Study
  Country: JP (occurrence: JP)
  Receive Date: 20121002
  Receipt Date: 20130617
  Transmission Date: 20140414
  Serious: Yes (Hospitalization)
  Sender: FDA-Public Use
  Company Number: JP-009507513-1209JPN011156

PATIENT
  Age: 58 Year
  Sex: Female
  Weight: 53 kg

DRUGS (14)
  1. PEGINTRON [Suspect]
     Indication: CHRONIC HEPATITIS C
     Dosage: 1.5 MICROGRAM PER KILOGRAM, QW
     Route: 058
     Dates: start: 20120315, end: 20120628
  2. PEGINTRON [Suspect]
     Dosage: 1.5 MICROGRAM PER KILOGRAM, QW
     Route: 058
     Dates: start: 20120713, end: 20120830
  3. REBETOL [Suspect]
     Indication: CHRONIC HEPATITIS C
     Dosage: 600 MG, QD
     Route: 048
     Dates: start: 20120315, end: 20120328
  4. REBETOL [Suspect]
     Dosage: 400 MG, QD
     Route: 048
     Dates: start: 20120329, end: 20120404
  5. REBETOL [Suspect]
     Dosage: 200 MG, QD
     Route: 048
     Dates: start: 20120405, end: 20120530
  6. REBETOL [Suspect]
     Dosage: 400 MG, QD
     Route: 048
     Dates: start: 20120531, end: 20120705
  7. REBETOL [Suspect]
     Dosage: 600 MG, QD
     Route: 048
     Dates: start: 20120713, end: 20120830
  8. TELAVIC [Suspect]
     Indication: CHRONIC HEPATITIS C
     Dosage: 1500 MG, QD
     Route: 048
     Dates: start: 20120315
  9. PROMAC (POLAPREZINC) [Concomitant]
     Indication: PROPHYLAXIS
     Dosage: 150 MG, QD
     Route: 048
     Dates: start: 20120412
  10. NAIXAN [Concomitant]
     Indication: PROPHYLAXIS
     Dosage: 200 MG, QD
     Route: 048
     Dates: start: 20120614, end: 20120726
  11. PL-GRANULES [Concomitant]
     Indication: NASOPHARYNGITIS
     Dosage: 3 G, QD
     Route: 048
     Dates: start: 20120628, end: 20120702
  12. GASMOTIN [Concomitant]
     Indication: PROPHYLAXIS
     Dosage: 15 MG, QD (FORMULATION: POR)
     Route: 048
     Dates: end: 20120725
  13. PARIET [Concomitant]
     Indication: PROPHYLAXIS
     Dosage: 10 MG, QD (FORMULATION: POR)
     Route: 048
  14. SEDEKOPAN [Concomitant]
     Indication: PROPHYLAXIS
     Dosage: 1 MG, QD (FORMULATION: POR)
     Route: 048

REACTIONS (2)
  - Anaemia [Recovering/Resolving]
  - Pneumonia [Recovering/Resolving]
